FAERS Safety Report 6611510-0 (Version None)
Quarter: 2010Q2

REPORT INFORMATION
  Report Type: 
  Country: None (occurrence: None)
  Receive Date: 20100303
  Receipt Date: 20100218
  Transmission Date: 20101027
  Serious: Yes (Other)
  Sender: FDA-Public Use
  Company Number: PHHY2010BR09638

PATIENT
  Age: 76 Year
  Sex: Female

DRUGS (3)
  1. EXFORGE [Suspect]
     Indication: HYPERTENSION
     Dosage: 1 TABLET (160/5 MG) DAILY
     Route: 048
     Dates: start: 20091001
  2. FORASEQ [Suspect]
     Indication: DYSPNOEA
     Dosage: ONE INHALATION OF EACH ACTIVE TWICE DAILY
  3. SYNTHROID [Concomitant]
     Indication: THYROID DISORDER
     Dosage: ONE TABLET IN FASTING
     Route: 048

REACTIONS (3)
  - CATARACT OPERATION [None]
  - CHROMATURIA [None]
  - URINARY TRACT INFECTION [None]
